FAERS Safety Report 23972178 (Version 1)
Quarter: 2024Q2

REPORT INFORMATION
  Report Type: Spontaneous
  Country: US (occurrence: None)
  Receive Date: 20240612
  Receipt Date: 20240612
  Transmission Date: 20240716
  Serious: Yes (Life-Threatening, Hospitalization, Disabling)
  Sender: FDA-Public Use
  Company Number: None

PATIENT
  Age: 66 Year
  Sex: Male
  Weight: 63.5 kg

DRUGS (8)
  1. AMIODARONE [Suspect]
     Active Substance: AMIODARONE
     Dates: start: 20240412, end: 20240427
  2. MIDODRINE [Suspect]
     Active Substance: MIDODRINE
  3. DIAZEPAM [Concomitant]
     Active Substance: DIAZEPAM
  4. METFORMIM HCL [Concomitant]
  5. ATORVASTATIN [Concomitant]
     Active Substance: ATORVASTATIN
  6. FAMOTIDINE [Concomitant]
     Active Substance: FAMOTIDINE
  7. OXYCODOENE [Concomitant]
  8. ALBUTEROL SULFATE [Concomitant]
     Active Substance: ALBUTEROL SULFATE

REACTIONS (7)
  - Dyspnoea [None]
  - Abdominal pain upper [None]
  - Hypotension [None]
  - Acute respiratory failure [None]
  - Chromaturia [None]
  - Heart rate decreased [None]
  - Cold sweat [None]

NARRATIVE: CASE EVENT DATE: 20240427
